FAERS Safety Report 8978999 (Version 1)
Quarter: 2012Q4

REPORT INFORMATION
  Report Type: Spontaneous
  Country: US (occurrence: None)
  Receive Date: 20121218
  Receipt Date: 20121218
  Transmission Date: 20130627
  Serious: Yes (Hospitalization)
  Sender: FDA-Public Use
  Company Number: None

PATIENT
  Age: 94 Year
  Sex: Female

DRUGS (2)
  1. INSULIN GLARGINE [Suspect]
     Indication: DIABETES
     Dosage: 16  UNITS   DAILY   SQ
     Route: 058
  2. JANUVIA [Suspect]
     Indication: DIABETES
     Dosage: 100 MG  QAM   PO
     Route: 048

REACTIONS (1)
  - Hypoglycaemia [None]
